FAERS Safety Report 4397248-1 (Version None)
Quarter: 2004Q3

REPORT INFORMATION
  Report Type: 
  Country: None (occurrence: None)
  Receive Date: 20040714
  Receipt Date: 20040706
  Transmission Date: 20050211
  Serious: Yes (Other)
  Sender: FDA-Public Use
  Company Number: US-MERCK-0407USA00886

PATIENT
  Age: 63 Year
  Sex: Female

DRUGS (5)
  1. ALBUTEROL [Concomitant]
     Route: 055
  2. HYDRODIURIL [Suspect]
     Indication: HYPERTENSION
     Route: 048
  3. IBUPROFEN [Concomitant]
     Route: 065
  4. LORAZEPAM [Concomitant]
     Route: 065
  5. SERTRALINE HYDROCHLORIDE [Suspect]
     Indication: DEPRESSION
     Route: 065

REACTIONS (4)
  - BLOOD POTASSIUM DECREASED [None]
  - CONVULSION [None]
  - HYPONATRAEMIA [None]
  - LETHARGY [None]
